FAERS Safety Report 7888826-3 (Version None)
Quarter: 2011Q4

REPORT INFORMATION
  Report Type: 
  Country: None (occurrence: None)
  Receive Date: 20111101
  Receipt Date: 20111020
  Transmission Date: 20120403
  Serious: Yes (Hospitalization, Other)
  Sender: FDA-Public Use
  Company Number: DSU-2011-07819

PATIENT
  Sex: Male

DRUGS (3)
  1. BENICAR [Suspect]
     Indication: HYPERTENSION
     Dosage: , PER ORAL
     Route: 048
  2. BLOOD THINNER (INGREDIENTS UNKNOWN) (ALL OTHER THERAPEUTIC PRODUCTS) [Concomitant]
  3. PLAVIX [Concomitant]

REACTIONS (3)
  - CORONARY ARTERY BYPASS [None]
  - CAROTID ARTERY OCCLUSION [None]
  - GASTRIC OPERATION [None]
